FAERS Safety Report 7714792-7 (Version None)
Quarter: 2011Q3

REPORT INFORMATION
  Report Type: 
  Country: None (occurrence: None)
  Receive Date: 20110829
  Receipt Date: 20110822
  Transmission Date: 20111222
  Serious: Yes (Hospitalization)
  Sender: FDA-Public Use
  Company Number: US-BAYER-201041674NA

PATIENT
  Age: 42 Year
  Sex: Female
  Weight: 90.703 kg

DRUGS (4)
  1. NAPROXEN [Concomitant]
     Dosage: 500 MG, BID
     Route: 048
  2. FLUOXETINE [Concomitant]
     Dosage: 20 MG, BID
     Route: 048
  3. CEPHALEXIN [Concomitant]
     Dosage: 500 MG, QID
     Route: 048
     Dates: start: 20090213
  4. YAZ [Suspect]
     Indication: PRODUCT USED FOR UNKNOWN INDICATION
     Route: 048

REACTIONS (1)
  - DEEP VEIN THROMBOSIS [None]
